FAERS Safety Report 16471083 (Version 1)
Quarter: 2019Q2

REPORT INFORMATION
  Report Type: Spontaneous
  Country: US (occurrence: US)
  Receive Date: 20190624
  Receipt Date: 20190624
  Transmission Date: 20190711
  Serious: Yes (Other)
  Sender: FDA-Public Use
  Company Number: US-ASTRAZENECA-2018SF25900

PATIENT
  Age: 27935 Day
  Sex: Female

DRUGS (7)
  1. HUMALOG [Concomitant]
     Active Substance: INSULIN LISPRO
  2. PREDNISONE. [Concomitant]
     Active Substance: PREDNISONE
  3. ATROVENT HFA [Concomitant]
     Active Substance: IPRATROPIUM BROMIDE
  4. PRILOSEC [Suspect]
     Active Substance: OMEPRAZOLE MAGNESIUM
     Route: 048
     Dates: start: 20080801, end: 20171101
  5. LANTUS [Concomitant]
     Active Substance: INSULIN GLARGINE
  6. DILTIAZEM. [Concomitant]
     Active Substance: DILTIAZEM
  7. NEXIUM [Suspect]
     Active Substance: ESOMEPRAZOLE MAGNESIUM
     Route: 048

REACTIONS (5)
  - Renal injury [Unknown]
  - Tubulointerstitial nephritis [Unknown]
  - Acute kidney injury [Unknown]
  - Chronic kidney disease [Unknown]
  - Renal failure [Unknown]

NARRATIVE: CASE EVENT DATE: 20171116
